FAERS Safety Report 17160394 (Version 1)
Quarter: 2019Q4

REPORT INFORMATION
  Report Type: Spontaneous
  Country: US (occurrence: US)
  Receive Date: 20191216
  Receipt Date: 20191216
  Transmission Date: 20200122
  Serious: No
  Sender: FDA-Public Use
  Company Number: US-ENDO PHARMACEUTICALS INC-2019-106051

PATIENT
  Sex: Male

DRUGS (4)
  1. XIAFLEX [Suspect]
     Active Substance: COLLAGENASE CLOSTRIDIUM HISTOLYTICUM
     Dosage: 0.25 ML, UNKNOWN (CYCLE 1, INJECTION 2)
     Route: 026
  2. XIAFLEX [Suspect]
     Active Substance: COLLAGENASE CLOSTRIDIUM HISTOLYTICUM
     Dosage: 0.25 ML, UNKNOWN (CYCLE 2, INJECTION 1)
     Route: 026
     Dates: start: 20190515
  3. XIAFLEX [Suspect]
     Active Substance: COLLAGENASE CLOSTRIDIUM HISTOLYTICUM
     Dosage: 0.25 ML, UNKNOWN (CYCLE 1, INJECTION 1)
     Route: 026
     Dates: start: 20180314
  4. XIAFLEX [Suspect]
     Active Substance: COLLAGENASE CLOSTRIDIUM HISTOLYTICUM
     Indication: PEYRONIE^S DISEASE
     Dosage: 2.5 ML, UNKNOWN (CYCLE 2, INJECTION 2)
     Route: 026
     Dates: start: 20190517

REACTIONS (3)
  - Inappropriate schedule of product administration [Unknown]
  - Penis disorder [Unknown]
  - Incorrect dose administered [Unknown]
